FAERS Safety Report 9286581 (Version 2)
Quarter: 2013Q2

REPORT INFORMATION
  Report Type: Other
  Country: DE (occurrence: DE)
  Receive Date: 20130513
  Receipt Date: 20130521
  Transmission Date: 20140414
  Serious: Yes (Hospitalization)
  Sender: FDA-Public Use
  Company Number: DE-ACTAVIS-2013-08050

PATIENT
  Age: 63 Year
  Sex: Male

DRUGS (15)
  1. OLANZAPINE (UNKNOWN) [Suspect]
     Indication: PRODUCT USED FOR UNKNOWN INDICATION
     Dosage: 7.5 MG DAILY
     Route: 048
     Dates: start: 20121207, end: 20121225
  2. OLANZAPINE (UNKNOWN) [Suspect]
     Dosage: 2.5 MG DAILY
     Route: 048
     Dates: start: 20121228
  3. OLANZAPINE (UNKNOWN) [Suspect]
     Dosage: 7.5 MG DAILY
     Route: 048
     Dates: start: 20121126, end: 20121127
  4. OLANZAPINE (UNKNOWN) [Suspect]
     Dosage: 15 MG DAILY
     Route: 048
     Dates: start: 20121203, end: 20121206
  5. OLANZAPINE (UNKNOWN) [Suspect]
     Dosage: 10 MG DAILY
     Route: 048
     Dates: start: 20121128, end: 20121202
  6. VALSARTAN (UNKNOWN) [Suspect]
     Indication: PRODUCT USED FOR UNKNOWN INDICATION
     Dosage: 160 MG DAILY
     Route: 048
     Dates: start: 20121204, end: 20121216
  7. VALSARTAN (UNKNOWN) [Suspect]
     Dosage: 320 MG DAILY
     Route: 048
     Dates: end: 20121203
  8. PANTOPRAZOLE SODIUM (UNKNOWN) [Suspect]
     Indication: PRODUCT USED FOR UNKNOWN INDICATION
     Dosage: 40 MG DAILY
     Route: 048
     Dates: start: 20121204, end: 20121228
  9. PANTOPRAZOLE SODIUM (UNKNOWN) [Suspect]
     Dosage: 80 MG DAILY
     Route: 048
     Dates: end: 20121203
  10. BISOPROLOL [Concomitant]
     Indication: PRODUCT USED FOR UNKNOWN INDICATION
     Dosage: 5 MNG DAILY
     Route: 048
  11. DIAZEPAM [Concomitant]
     Indication: PRODUCT USED FOR UNKNOWN INDICATION
     Dosage: 10 MG DAILY
     Route: 048
     Dates: start: 20121130
  12. ASS [Concomitant]
     Indication: PRODUCT USED FOR UNKNOWN INDICATION
     Dosage: 100 MG DAILY
     Route: 048
  13. EPIVIR [Concomitant]
     Indication: PRODUCT USED FOR UNKNOWN INDICATION
     Dosage: 300 MG DAILY
     Route: 048
  14. RITONAVIR [Concomitant]
     Indication: PRODUCT USED FOR UNKNOWN INDICATION
     Dosage: 100 MG DAILY
     Route: 048
  15. PREZISTA [Concomitant]
     Indication: PRODUCT USED FOR UNKNOWN INDICATION
     Dosage: 1200 MG
     Route: 048

REACTIONS (1)
  - Hyponatraemia [Recovered/Resolved]
